FAERS Safety Report 9818706 (Version 1)
Quarter: 2014Q1

REPORT INFORMATION
  Report Type: Spontaneous
  Country: US (occurrence: None)
  Receive Date: 20140114
  Receipt Date: 20140114
  Transmission Date: 20141002
  Serious: Yes (Disabling, Other)
  Sender: FDA-Public Use
  Company Number: None

PATIENT
  Age: 56 Year
  Sex: Female
  Weight: 55.34 kg

DRUGS (1)
  1. RECLAST [Suspect]
     Indication: OSTEOPENIA
     Route: 042
     Dates: start: 20120114

REACTIONS (29)
  - Tremor [None]
  - Chest discomfort [None]
  - Myalgia [None]
  - Arthralgia [None]
  - Eye pain [None]
  - Headache [None]
  - Pyrexia [None]
  - Chills [None]
  - Dizziness [None]
  - Vision blurred [None]
  - Macular fibrosis [None]
  - Macular hole [None]
  - Impaired work ability [None]
  - Nausea [None]
  - Vomiting [None]
  - Bone disorder [None]
  - Vitreous floaters [None]
  - Constipation [None]
  - Flatulence [None]
  - Thyroid neoplasm [None]
  - Barrett^s oesophagus [None]
  - Retinal tear [None]
  - Cataract [None]
  - Visual impairment [None]
  - Dehydration [None]
  - Malaise [None]
  - Macular oedema [None]
  - Eye haemorrhage [None]
  - Balance disorder [None]
